FAERS Safety Report 21539793 (Version 1)
Quarter: 2022Q4

REPORT INFORMATION
  Report Type: Other
  Country: GB (occurrence: GB)
  Receive Date: 20221102
  Receipt Date: 20221102
  Transmission Date: 20230113
  Serious: No
  Sender: FDA-Public Use
  Company Number: None

PATIENT
  Age: 67 Year
  Sex: Male
  Weight: 71 kg

DRUGS (28)
  1. SERTRALINE [Suspect]
     Active Substance: SERTRALINE HYDROCHLORIDE
     Indication: Product used for unknown indication
     Dosage: 100 MILLIGRAM (UNCOATED TABLET)
     Route: 048
     Dates: start: 20220908
  2. Adcal [Concomitant]
     Indication: Ill-defined disorder
     Dosage: 2 DOSAGE FORM, BID (TAKE TWO TWICE DAILY)
     Route: 065
     Dates: start: 20220323
  3. ALLOPURINOL [Concomitant]
     Active Substance: ALLOPURINOL
     Indication: Ill-defined disorder
     Dosage: 1 DOSAGE FORM, QD (TAKE ONE DAILY)
     Route: 065
     Dates: start: 20220323
  4. AMISULPRIDE [Concomitant]
     Active Substance: AMISULPRIDE
     Indication: Ill-defined disorder
     Dosage: 1 DOSAGE FORM (1 TABLET)
     Route: 065
     Dates: start: 20220908
  5. AMLODIPINE [Concomitant]
     Active Substance: AMLODIPINE BESYLATE
     Indication: Ill-defined disorder
     Dosage: 1 DOSAGE FORM, QD (TAKE ONE DAILY)
     Route: 065
     Dates: start: 20220323
  6. AMOXICILLIN [Concomitant]
     Active Substance: AMOXICILLIN
     Indication: Ill-defined disorder
     Dosage: 2 DOSAGE FORM (2 CAPSULE)
     Route: 065
     Dates: start: 20220715, end: 20220720
  7. ATORVASTATIN [Concomitant]
     Active Substance: ATORVASTATIN
     Indication: Ill-defined disorder
     Dosage: 1 DOSAGE FORM, QD (TAKE ONE DAILY)
     Route: 065
     Dates: start: 20220323
  8. BUPRENORPHINE [Concomitant]
     Active Substance: BUPRENORPHINE
     Indication: Ill-defined disorder
     Dosage: 5 MICROGRAM PER HOUR
     Route: 065
     Dates: start: 20220902
  9. CLONAZEPAM [Concomitant]
     Active Substance: CLONAZEPAM
     Indication: Ill-defined disorder
     Dosage: UNK (0.5 TABLET)
     Route: 065
     Dates: start: 20220714
  10. AMOXICILLIN\CLAVULANATE POTASSIUM [Concomitant]
     Active Substance: AMOXICILLIN\CLAVULANATE POTASSIUM
     Indication: Ill-defined disorder
     Dosage: 1 DOSAGE FORM (1 TABLET)
     Route: 065
     Dates: start: 20220626, end: 20220628
  11. CODEINE PHOSPHATE [Concomitant]
     Active Substance: CODEINE PHOSPHATE
     Indication: Ill-defined disorder
     Dosage: 1 DOSAGE FORM (1 TABLET)
     Route: 065
     Dates: start: 20220725, end: 20220728
  12. Complan Strawberry [Concomitant]
     Indication: Nutritional supplementation
     Dosage: 57 G
     Route: 065
     Dates: start: 20220704
  13. FOLIC ACID [Concomitant]
     Active Substance: FOLIC ACID
     Indication: Ill-defined disorder
     Dosage: 1 DOSAGE FORM (1 TABLET)
     Route: 065
     Dates: start: 20220616, end: 20220728
  14. HALOPERIDOL [Concomitant]
     Active Substance: HALOPERIDOL
     Indication: Ill-defined disorder
     Dosage: 2 DOSAGE FORM (2 CAPSULE)
     Route: 065
     Dates: start: 20220728, end: 20220803
  15. SCOPOLAMINE HYDROBROMIDE [Concomitant]
     Active Substance: SCOPOLAMINE HYDROBROMIDE
     Indication: Ill-defined disorder
     Dosage: 1 DOSAGE FORM (1 TABLET)
     Route: 065
     Dates: start: 20220728, end: 20220803
  16. LORAZEPAM [Concomitant]
     Active Substance: LORAZEPAM
     Indication: Ill-defined disorder
     Dosage: UNK (0.5 TABLET)
     Route: 065
     Dates: start: 20220624, end: 20220628
  17. POLYETHYLENE GLYCOLS [Concomitant]
     Active Substance: POLYETHYLENE GLYCOLS
     Indication: Ill-defined disorder
     Dosage: 1 DOSAGE FORM (1 SACHET)
     Route: 065
     Dates: start: 20220617, end: 20220708
  18. POLYETHYLENE GLYCOLS [Concomitant]
     Active Substance: POLYETHYLENE GLYCOLS
     Dosage: 1 DOSAGE FORM (1 SACHET)
     Route: 065
     Dates: start: 20220906
  19. MELATONIN [Concomitant]
     Active Substance: MELATONIN
     Indication: Ill-defined disorder
     Dosage: 2 DOSAGE FORM (2 TABLET)
     Route: 065
     Dates: start: 20220721
  20. MEMANTINE [Concomitant]
     Active Substance: MEMANTINE
     Indication: Ill-defined disorder
     Dosage: 1 DOSAGE FORM (1 TABLET)
     Route: 065
     Dates: start: 20220323
  21. NITROFURANTOIN [Concomitant]
     Active Substance: NITROFURANTOIN
     Indication: Ill-defined disorder
     Dosage: 1 DOSAGE FORM (1 TABLET)
     Route: 065
     Dates: start: 20220905
  22. NYSTATIN [Concomitant]
     Active Substance: NYSTATIN
     Indication: Ill-defined disorder
     Dosage: 1 MILLILITER
     Route: 065
     Dates: start: 20220707, end: 20220714
  23. OLANZAPINE [Concomitant]
     Active Substance: OLANZAPINE
     Indication: Ill-defined disorder
     Dosage: 1 DOSAGE FORM (1 TABLET)
     Route: 065
     Dates: start: 20220726, end: 20220728
  24. ACETAMINOPHEN [Concomitant]
     Active Substance: ACETAMINOPHEN
     Indication: Ill-defined disorder
     Dosage: 2 DOSAGE FORM (2 TABLET)
     Route: 065
     Dates: start: 20220609, end: 20220728
  25. PROCYCLIDINE [Concomitant]
     Active Substance: PROCYCLIDINE
     Indication: Ill-defined disorder
     Dosage: UNK (0.5 TABLET)
     Route: 065
     Dates: start: 20220707, end: 20220707
  26. PROMETHAZINE HYDROCHLORIDE [Concomitant]
     Active Substance: PROMETHAZINE HYDROCHLORIDE
     Indication: Ill-defined disorder
     Dosage: 25 MG
     Route: 065
     Dates: start: 20220618, end: 20220707
  27. RISPERIDONE [Concomitant]
     Active Substance: RISPERIDONE
     Indication: Ill-defined disorder
     Dosage: UNK UNK, BID (HALF A TABLET TWICE A DAY)
     Route: 065
     Dates: start: 20220323
  28. ZOPICLONE [Concomitant]
     Active Substance: ZOPICLONE
     Indication: Ill-defined disorder
     Dosage: 1 DOSAGE FORM (1 TABLET)
     Route: 065
     Dates: start: 20220615, end: 20220707

REACTIONS (1)
  - Diarrhoea [Unknown]

NARRATIVE: CASE EVENT DATE: 20220908
